FAERS Safety Report 8495687-0 (Version None)
Quarter: 2012Q3

REPORT INFORMATION
  Report Type: 
  Country: None (occurrence: None)
  Receive Date: 20120709
  Receipt Date: 20120705
  Transmission Date: 20120928
  Serious: Yes (Other)
  Sender: FDA-Public Use
  Company Number: US-PFIZER INC-2012162292

PATIENT
  Sex: Male
  Weight: 70.748 kg

DRUGS (5)
  1. CHANTIX [Suspect]
     Dosage: UNK
     Dates: start: 20120101, end: 20120702
  2. WELLBUTRIN [Concomitant]
     Dosage: UNK
  3. GALANTAMINE [Concomitant]
     Indication: MEMORY IMPAIRMENT
     Dosage: 16 MG, DAILY
  4. OMEPRAZOLE [Concomitant]
     Indication: GASTRIC DISORDER
     Dosage: 20 MG,DAILY
  5. CHANTIX [Suspect]
     Indication: SMOKING CESSATION THERAPY
     Dosage: 0.5 MG, DAILY
     Dates: start: 20120626, end: 20120101

REACTIONS (3)
  - VISION BLURRED [None]
  - HYPERSENSITIVITY [None]
  - SWOLLEN TONGUE [None]
